FAERS Safety Report 23531017 (Version 2)
Quarter: 2024Q1

REPORT INFORMATION
  Report Type: Spontaneous
  Country: TR (occurrence: TR)
  Receive Date: 20240216
  Receipt Date: 20240229
  Transmission Date: 20240409
  Serious: Yes (Death, Hospitalization, Other)
  Sender: FDA-Public Use
  Company Number: TR-SUN PHARMACEUTICAL INDUSTRIES LTD-2024R1-431524

PATIENT
  Age: 61 Year
  Sex: Male

DRUGS (1)
  1. SUNITINIB [Suspect]
     Active Substance: SUNITINIB
     Indication: Clear cell renal cell carcinoma
     Dosage: 50 MILLIGRAM, DAILY
     Route: 065

REACTIONS (3)
  - Cerebral haemorrhage [Fatal]
  - Autoimmune haemolytic anaemia [Unknown]
  - Metastases to central nervous system [Unknown]
